FAERS Safety Report 24881810 (Version 1)
Quarter: 2025Q1

REPORT INFORMATION
  Report Type: Spontaneous
  Country: ES (occurrence: ES)
  Receive Date: 20250124
  Receipt Date: 20250124
  Transmission Date: 20250409
  Serious: Yes (Other)
  Sender: NOVITIUM PHARMA
  Company Number: ES-NOVITIUMPHARMA-2025ESNVP00129

PATIENT
  Age: 46 Year
  Sex: Female

DRUGS (2)
  1. CARBAMAZEPINE [Suspect]
     Active Substance: CARBAMAZEPINE
     Indication: Neuromyotonia
  2. GABAPENTIN [Concomitant]
     Active Substance: GABAPENTIN
     Indication: Neuromyotonia

REACTIONS (2)
  - Toxic skin eruption [Unknown]
  - Erythema multiforme [Unknown]
